FAERS Safety Report 8821449 (Version 1)
Quarter: 2012Q4

REPORT INFORMATION
  Report Type: 
  Country: NL (occurrence: NL)
  Receive Date: 20121002
  Receipt Date: 20121002
  Transmission Date: 20130627
  Serious: Yes (Hospitalization)
  Sender: FDA-Public Use
  Company Number: NL-ROCHE-1122151

PATIENT
  Sex: Female

DRUGS (4)
  1. ROACTEMRA [Suspect]
     Indication: RHEUMATOID ARTHRITIS
     Route: 042
  2. HUMIRA [Concomitant]
     Dosage: 40 mg/14 days
     Route: 058
  3. PREDNISOLONE [Concomitant]
     Route: 065
  4. PREDNISOLONE [Concomitant]
     Route: 065

REACTIONS (1)
  - Joint swelling [Recovered/Resolved]
